FAERS Safety Report 4845847-2 (Version None)
Quarter: 2005Q4

REPORT INFORMATION
  Report Type: 
  Country: None (occurrence: None)
  Receive Date: 20051206
  Receipt Date: 20051129
  Transmission Date: 20060501
  Serious: Yes (Other)
  Sender: FDA-Public Use
  Company Number: CH-GLAXOSMITHKLINE-B0402138A

PATIENT
  Age: 30 Year
  Sex: Female

DRUGS (3)
  1. COMBIVIR [Suspect]
     Route: 048
  2. SUSTIVA [Suspect]
     Dosage: 600MG PER DAY
     Route: 048
     Dates: end: 20041224
  3. VIRAMUNE [Suspect]
     Dosage: 200MG PER DAY
     Route: 048
     Dates: start: 20041225

REACTIONS (2)
  - ABORTION INDUCED [None]
  - DRUG EXPOSURE DURING PREGNANCY [None]
